FAERS Safety Report 20587633 (Version 1)
Quarter: 2022Q1

REPORT INFORMATION
  Report Type: Spontaneous
  Country: US (occurrence: None)
  Receive Date: 20220314
  Receipt Date: 20220314
  Transmission Date: 20220424
  Serious: Yes (Death, Life-Threatening, Hospitalization, Other)
  Sender: FDA-Public Use
  Company Number: US-MLMSERVICE-20220224-3393890-1

PATIENT
  Age: 16 Year
  Sex: Male

DRUGS (2)
  1. METHOTREXATE [Suspect]
     Active Substance: METHOTREXATE
     Indication: T-cell lymphoma
     Dosage: ESCALATING DOSES
     Route: 065
  2. CANNABIS SATIVA SUBSP. INDICA TOP [Suspect]
     Active Substance: CANNABIS SATIVA SUBSP. INDICA TOP
     Indication: Product used for unknown indication
     Route: 055

REACTIONS (8)
  - Septic shock [Fatal]
  - Splenic infection fungal [Fatal]
  - Scedosporium infection [Fatal]
  - Pneumonia fungal [Fatal]
  - Fungal skin infection [Fatal]
  - Sinusitis fungal [Fatal]
  - Cerebral fungal infection [Fatal]
  - Febrile neutropenia [Fatal]
